FAERS Safety Report 7832345-7 (Version None)
Quarter: 2011Q4

REPORT INFORMATION
  Report Type: 
  Country: None (occurrence: None)
  Receive Date: 20111022
  Receipt Date: 20111007
  Transmission Date: 20120403
  Serious: Yes (Hospitalization, Disabling, Other)
  Sender: FDA-Public Use
  Company Number: US-BAYER-2011-003056

PATIENT
  Age: 36 Year
  Sex: Female
  Weight: 61 kg

DRUGS (1)
  1. YAZ [Suspect]
     Indication: CONTRACEPTION
     Dosage: UNK
     Dates: start: 20060101, end: 20090111

REACTIONS (25)
  - IMPAIRED SELF-CARE [None]
  - THROMBOSIS [None]
  - VISUAL IMPAIRMENT [None]
  - ANXIETY [None]
  - PARAESTHESIA [None]
  - MYOCARDIAL INFARCTION [None]
  - VOMITING [None]
  - POST STROKE DEPRESSION [None]
  - STRESS [None]
  - SINUS BRADYCARDIA [None]
  - HEADACHE [None]
  - INJURY [None]
  - HYPERHIDROSIS [None]
  - DIARRHOEA [None]
  - HEMIPARESIS [None]
  - GAIT DISTURBANCE [None]
  - APHASIA [None]
  - UNRESPONSIVE TO STIMULI [None]
  - PLEURAL EFFUSION [None]
  - ARTERIAL THROMBOSIS [None]
  - BLOOD PRESSURE DECREASED [None]
  - CEREBRAL INFARCTION [None]
  - CONFUSIONAL STATE [None]
  - COGNITIVE DISORDER [None]
  - PAIN [None]
